FAERS Safety Report 7055284-0 (Version None)
Quarter: 2010Q4

REPORT INFORMATION
  Report Type: 
  Country: None (occurrence: None)
  Receive Date: 20101021
  Receipt Date: 20101013
  Transmission Date: 20110411
  Serious: Yes (Hospitalization)
  Sender: FDA-Public Use
  Company Number: FR-JNJFOC-20101004768

PATIENT
  Sex: Female

DRUGS (8)
  1. GALANTAMINE HYDROBROMIDE [Suspect]
     Indication: DEMENTIA ALZHEIMER'S TYPE
     Route: 065
  2. TERCIAN [Suspect]
     Indication: SLEEP DISORDER
     Route: 065
  3. PERINDOPRIL ERBUMINE [Concomitant]
  4. ASPEGIC 1000 [Concomitant]
  5. ACEBUTOLOL [Concomitant]
  6. FENOFIBRATE [Concomitant]
  7. NITRODERM [Concomitant]
  8. SERESTA [Concomitant]

REACTIONS (1)
  - DEMENTIA ALZHEIMER'S TYPE [None]
